FAERS Safety Report 8782380 (Version 1)
Quarter: 2012Q4

REPORT INFORMATION
  Report Type: 
  Country: US (occurrence: US)
  Receive Date: 20120913
  Receipt Date: 20120913
  Transmission Date: 20130627
  Serious: No
  Sender: FDA-Public Use
  Company Number: US-VERTEX PHARMACEUTICAL INC.-2012-019856

PATIENT
  Sex: Female
  Weight: 70 kg

DRUGS (3)
  1. INCIVEK [Suspect]
     Indication: HEPATITIS C
     Dosage: 750 mg, tid
     Route: 048
     Dates: start: 201208
  2. RIBAVIRIN [Concomitant]
     Indication: HEPATITIS C
     Dosage: 5 UNK, UNK
     Dates: start: 201208
  3. PEGINTERFERON [Concomitant]
     Indication: HEPATITIS C
     Dosage: UNK
     Dates: start: 20120808

REACTIONS (1)
  - Inappropriate schedule of drug administration [Unknown]
